FAERS Safety Report 19810401 (Version 1)
Quarter: 2021Q3

REPORT INFORMATION
  Report Type: Report from Study
  Country: DE (occurrence: DE)
  Receive Date: 20210909
  Receipt Date: 20210909
  Transmission Date: 20211014
  Serious: Yes (Hospitalization, Other)
  Sender: FDA-Public Use
  Company Number: DE-MYLANLABS-2021M1059317

PATIENT
  Sex: Female

DRUGS (4)
  1. KISQALI [Suspect]
     Active Substance: RIBOCICLIB
     Indication: BREAST CANCER METASTATIC
     Dosage: 600 MG, QD (SCHEMA 21 DAYS INTAKE, 7 DAYS PAUSE)
     Route: 048
     Dates: start: 20190913, end: 20190917
  2. LETROZOLE. [Suspect]
     Active Substance: LETROZOLE
     Indication: BREAST CANCER
     Dosage: 2.5 MG, QD
     Route: 048
     Dates: start: 20190913
  3. FULVESTRANT. [Suspect]
     Active Substance: FULVESTRANT
     Indication: BREAST CANCER METASTATIC
     Dosage: 600 MG DAILY (SCHEMA 21 DAYS INTAKE, 7 DAYS PAUSE)
     Route: 048
     Dates: start: 20190913, end: 20190917
  4. KISQALI [Suspect]
     Active Substance: RIBOCICLIB
     Dosage: UNK
     Route: 048
     Dates: start: 20190603

REACTIONS (6)
  - Dizziness [Not Recovered/Not Resolved]
  - Eastern Cooperative Oncology Group performance status worsened [Not Recovered/Not Resolved]
  - Diarrhoea [Not Recovered/Not Resolved]
  - Dyspnoea exertional [Not Recovered/Not Resolved]
  - Pleural effusion [Not Recovered/Not Resolved]
  - Dysphonia [Not Recovered/Not Resolved]

NARRATIVE: CASE EVENT DATE: 20190603
